FAERS Safety Report 7373943-7 (Version None)
Quarter: 2011Q1

REPORT INFORMATION
  Report Type: 
  Country: None (occurrence: None)
  Receive Date: 20110315
  Receipt Date: 20110224
  Transmission Date: 20110831
  Serious: Yes (Other)
  Sender: FDA-Public Use
  Company Number: 2011SP009167

PATIENT
  Sex: Female

DRUGS (1)
  1. SHADE OIL FREE GEL SPF 30 (HOMOSALATE/OXYBENZONE/OCTINOXATE /00000000/ [Suspect]
     Indication: PROPHYLAXIS AGAINST SOLAR RADIATION
     Dates: start: 20110201

REACTIONS (4)
  - APPLICATION SITE IRRITATION [None]
  - SWELLING FACE [None]
  - LIQUID PRODUCT PHYSICAL ISSUE [None]
  - PRODUCT ODOUR ABNORMAL [None]
